FAERS Safety Report 12360243 (Version 1)
Quarter: 2016Q2

REPORT INFORMATION
  Report Type: Spontaneous
  Country: IT (occurrence: IT)
  Receive Date: 20160512
  Receipt Date: 20160512
  Transmission Date: 20160815
  Serious: Yes (Other)
  Sender: FDA-Public Use
  Company Number: IT-FRESENIUS KABI-FK201602561

PATIENT
  Age: 63 Year
  Sex: Female

DRUGS (5)
  1. FLUOROURACIL AHCL [Concomitant]
     Active Substance: FLUOROURACIL
     Route: 041
     Dates: start: 20160426, end: 20160426
  2. ZOFRAN [Concomitant]
     Active Substance: ONDANSETRON HYDROCHLORIDE
     Route: 041
     Dates: start: 20160426, end: 20160426
  3. DEXAMETHASONE PHOSPHATE HOSPIRA [Concomitant]
     Active Substance: DEXAMETHASONE PHOSPHATE
     Route: 041
     Dates: start: 20160426, end: 20160426
  4. CALCIO LEVOFOLINATO TEVA [Concomitant]
     Active Substance: LEUCOVORIN CALCIUM
     Route: 041
     Dates: start: 20160426, end: 20160426
  5. OXALIPLATIN 5MG/ML CONCENTRATE FOR SOLUTION FOR INFUSION [Suspect]
     Active Substance: OXALIPLATIN
     Indication: COLORECTAL CANCER
     Route: 042
     Dates: start: 20160426, end: 20160426

REACTIONS (3)
  - Vasodilatation [Recovered/Resolved]
  - Tachycardia [Recovered/Resolved]
  - Dyspnoea [Recovered/Resolved]

NARRATIVE: CASE EVENT DATE: 20160426
